FAERS Safety Report 7082207-0 (Version None)
Quarter: 2010Q4

REPORT INFORMATION
  Report Type: 
  Country: None (occurrence: None)
  Receive Date: 20101103
  Receipt Date: 20090815
  Transmission Date: 20110411
  Serious: Yes (Other)
  Sender: FDA-Public Use
  Company Number: PHEH2009US12002

PATIENT
  Sex: Male

DRUGS (2)
  1. EXJADE [Suspect]
     Indication: TRANSFUSION
     Dosage: 2000 MG, QD
     Route: 048
     Dates: start: 20090320, end: 20090721
  2. EXJADE [Suspect]
     Dosage: 500 MG

REACTIONS (1)
  - BONE MARROW TRANSPLANT [None]
